FAERS Safety Report 6656331-8 (Version None)
Quarter: 2010Q1

REPORT INFORMATION
  Report Type: 
  Country: None (occurrence: None)
  Receive Date: 20100317
  Receipt Date: 20091120
  Transmission Date: 20100710
  Serious: No
  Sender: FDA-Public Use
  Company Number: DSA_42060_2009

PATIENT
  Sex: Female

DRUGS (18)
  1. XENAZINE [Suspect]
     Indication: HUNTINGTON'S CHOREA
     Dosage: (12.5 MG BID ORAL)
     Route: 048
     Dates: start: 20091013, end: 20091021
  2. DARVOCET [Concomitant]
  3. ZOCOR [Concomitant]
  4. ATIVAN [Concomitant]
  5. AMBIEN [Concomitant]
  6. ROBAXIN [Concomitant]
  7. LASIX [Concomitant]
  8. SYNTHROID [Concomitant]
  9. GLUCOTROL [Concomitant]
  10. LOPID [Concomitant]
  11. K-DUR [Concomitant]
  12. MONOPRIL [Concomitant]
  13. GLUCOPHAGE [Concomitant]
  14. FERROUS SULFATE TAB [Concomitant]
  15. METOPROLOL TARTRATE [Concomitant]
  16. NEXIUM [Concomitant]
  17. LEXAPRO [Concomitant]
  18. DITROPAN [Concomitant]

REACTIONS (3)
  - DEPRESSION [None]
  - NAUSEA [None]
  - PRURITUS [None]
